FAERS Safety Report 5078389-2 (Version None)
Quarter: 2006Q3

REPORT INFORMATION
  Report Type: 
  Country: None (occurrence: None)
  Receive Date: 20060811
  Receipt Date: 20060808
  Transmission Date: 20061208
  Serious: Yes (Hospitalization)
  Sender: FDA-Public Use
  Company Number: 2/05

PATIENT
  Age: 37 Year
  Sex: Female

DRUGS (1)
  1. ZYBAN [Suspect]
     Dosage: 6G PER DAY
     Route: 048

REACTIONS (5)
  - AKATHISIA [None]
  - DISORIENTATION [None]
  - HALLUCINATION [None]
  - OVERDOSE [None]
  - TACHYCARDIA [None]
